FAERS Safety Report 23340310 (Version 1)
Quarter: 2023Q4

REPORT INFORMATION
  Report Type: Report from Study
  Country: US (occurrence: US)
  Receive Date: 20231227
  Receipt Date: 20231227
  Transmission Date: 20240110
  Serious: Yes (Other)
  Sender: FDA-Public Use
  Company Number: US-AMGEN-USASL2023043928

PATIENT
  Age: 77 Year
  Sex: Female

DRUGS (1)
  1. KYPROLIS [Suspect]
     Active Substance: CARFILZOMIB
     Indication: Plasma cell myeloma
     Dosage: UNK, Q2WK
     Route: 065
     Dates: start: 202202, end: 202305

REACTIONS (14)
  - Plasma cell myeloma [Recovered/Resolved]
  - Cardiac dysfunction [Recovered/Resolved]
  - Feeling abnormal [Not Recovered/Not Resolved]
  - Rash pruritic [Not Recovered/Not Resolved]
  - Rash papular [Not Recovered/Not Resolved]
  - Fatigue [Not Recovered/Not Resolved]
  - Depression [Not Recovered/Not Resolved]
  - Inflammation [Unknown]
  - Skin irritation [Unknown]
  - Rash macular [Unknown]
  - T-lymphocyte count abnormal [Unknown]
  - Memory impairment [Unknown]
  - Dysphonia [Unknown]
  - Therapeutic product effect decreased [Unknown]

NARRATIVE: CASE EVENT DATE: 20220101
